FAERS Safety Report 6029372-1 (Version None)
Quarter: 2009Q1

REPORT INFORMATION
  Report Type: 
  Country: None (occurrence: None)
  Receive Date: 20090105
  Receipt Date: 20081224
  Transmission Date: 20090719
  Serious: Yes (Life-Threatening, Hospitalization, Other)
  Sender: FDA-Public Use
  Company Number: 2008US002140

PATIENT
  Age: 10 Year
  Sex: Female

DRUGS (5)
  1. AMBISOME [Suspect]
     Indication: ASPERGILLOSIS
     Dosage: 50 MG, UID/QD, IV NOS; 100 MG, UID/QD, IV NOS
     Route: 042
     Dates: start: 20080714, end: 20080812
  2. AMBISOME [Suspect]
     Indication: ASPERGILLOSIS
     Dosage: 50 MG, UID/QD, IV NOS; 100 MG, UID/QD, IV NOS
     Route: 042
     Dates: start: 20080813, end: 20081014
  3. VFEND [Concomitant]
  4. FULCALIQ (VITAMINS NOS, AMINO ACIDS NOS, ELECTROLYTES NOS, CARBOHYDRAT [Concomitant]
  5. VICCLOX MEIJI (ACICLOVIR) [Concomitant]

REACTIONS (9)
  - DEPRESSED LEVEL OF CONSCIOUSNESS [None]
  - DRUG EXPOSURE DURING PREGNANCY [None]
  - GASTROINTESTINAL DISORDER [None]
  - GRAFT VERSUS HOST DISEASE [None]
  - HAEMODIALYSIS [None]
  - HYPERAMMONAEMIA [None]
  - HYPOKALAEMIA [None]
  - MYDRIASIS [None]
  - VIRAL INFECTION [None]
